FAERS Safety Report 21207945 (Version 2)
Quarter: 2022Q3

REPORT INFORMATION
  Report Type: Spontaneous
  Country: JP (occurrence: JP)
  Receive Date: 20220812
  Receipt Date: 20220901
  Transmission Date: 20221027
  Serious: Yes (Other)
  Sender: FDA-Public Use
  Company Number: JP-OTSUKA-2022_040528

PATIENT
  Age: 34 Year
  Sex: Male

DRUGS (6)
  1. BUSULFEX [Suspect]
     Active Substance: BUSULFAN
     Indication: Allogenic stem cell transplantation
     Dosage: UNK
     Route: 065
  2. BUSULFEX [Suspect]
     Active Substance: BUSULFAN
     Indication: Premedication
  3. CYCLOPHOSPHAMIDE [Suspect]
     Active Substance: CYCLOPHOSPHAMIDE
     Indication: Allogenic stem cell transplantation
     Dosage: UNK
     Route: 065
  4. CYCLOPHOSPHAMIDE [Suspect]
     Active Substance: CYCLOPHOSPHAMIDE
     Indication: Premedication
  5. CYCLOSPORINE [Concomitant]
     Active Substance: CYCLOSPORINE
     Indication: Product used for unknown indication
     Dosage: UNK
     Route: 065
  6. CYCLOSPORINE [Concomitant]
     Active Substance: CYCLOSPORINE
     Dosage: 10 MG/DAY
     Route: 065

REACTIONS (4)
  - Pneumomediastinum [Unknown]
  - Pneumothorax [Unknown]
  - Interstitial lung disease [Recovered/Resolved with Sequelae]
  - Respiratory failure [Unknown]
